FAERS Safety Report 10726156 (Version 1)
Quarter: 2015Q1

REPORT INFORMATION
  Report Type: Spontaneous
  Country: AU (occurrence: AU)
  Receive Date: 20150121
  Receipt Date: 20150121
  Transmission Date: 20150721
  Serious: Yes (Other)
  Sender: FDA-Public Use
  Company Number: AU-JNJFOC-20150110318

PATIENT
  Sex: Female

DRUGS (4)
  1. PREDNISOLONE. [Concomitant]
     Active Substance: PREDNISOLONE
     Route: 065
  2. SIMPONI [Suspect]
     Active Substance: GOLIMUMAB
     Indication: RHEUMATOID ARTHRITIS
     Route: 058
  3. SALAZOPYRIN [Concomitant]
     Active Substance: SULFASALAZINE
     Route: 065
  4. PLAQUENIL [Concomitant]
     Active Substance: HYDROXYCHLOROQUINE SULFATE
     Route: 065

REACTIONS (4)
  - Pituitary tumour [Unknown]
  - Insulin-like growth factor increased [Unknown]
  - Acromegaly [Unknown]
  - Thyroid disorder [Unknown]
